FAERS Safety Report 6661552-4 (Version None)
Quarter: 2010Q1

REPORT INFORMATION
  Report Type: 
  Country: None (occurrence: None)
  Receive Date: 20100331
  Receipt Date: 20100319
  Transmission Date: 20100710
  Serious: Yes (Other)
  Sender: FDA-Public Use
  Company Number: US-PFIZER INC-2010028317

PATIENT
  Sex: Female
  Weight: 61.234 kg

DRUGS (18)
  1. ARTHROTEC [Suspect]
     Indication: ARTHRITIS
     Dosage: FREQUENCY: 2X/DAY,
     Dates: end: 20100301
  2. WELLBUTRIN [Concomitant]
     Indication: MIGRAINE PROPHYLAXIS
  3. DETROL [Concomitant]
     Dosage: UNK
  4. DIOVANE [Concomitant]
     Dosage: UNK
  5. CLARINEX [Concomitant]
     Dosage: UNK
  6. TOPAMAX [Concomitant]
     Indication: MIGRAINE PROPHYLAXIS
     Dosage: UNK
  7. LIPITOR [Concomitant]
     Dosage: UNK
  8. PANTOPRAZOLE [Concomitant]
     Indication: PROPHYLAXIS
     Dosage: UNK
  9. CLIMARA [Concomitant]
     Dosage: UNK
     Route: 062
  10. ALEVE (CAPLET) [Concomitant]
     Indication: MIGRAINE
     Dosage: FREQUENCY: AS NEEDED,
  11. LEVOXYL [Concomitant]
     Dosage: UNK
  12. D.H.E. 45 [Concomitant]
     Dosage: FREQUENCY: AS NEEDED,
  13. FISH OIL [Concomitant]
     Dosage: UNK
  14. MULTI-VITAMINS [Concomitant]
     Dosage: UNK
  15. VITAMIN C [Concomitant]
     Dosage: UNK
  16. VITAMIN B-12 [Concomitant]
     Dosage: UNK
  17. LUTEIN [Concomitant]
     Dosage: UNK
  18. TRAZODONE HYDROCHLORIDE [Concomitant]
     Dosage: FREQUENCY: AS NEEDED,

REACTIONS (5)
  - ABDOMINAL PAIN UPPER [None]
  - BACK PAIN [None]
  - BLOOD PRESSURE ABNORMAL [None]
  - BLOOD URINE PRESENT [None]
  - NEPHROLITHIASIS [None]
